FAERS Safety Report 8169211-6 (Version None)
Quarter: 2012Q1

REPORT INFORMATION
  Report Type: 
  Country: None (occurrence: None)
  Receive Date: 20120227
  Receipt Date: 20120223
  Transmission Date: 20120608
  Serious: Yes (Hospitalization)
  Sender: FDA-Public Use
  Company Number: DE-ABBOTT-12P-062-0895352-00

PATIENT
  Sex: Female

DRUGS (1)
  1. HUMIRA [Suspect]
     Indication: CROHN'S DISEASE
     Dosage: ONCE
     Route: 058
     Dates: start: 20120106, end: 20120106

REACTIONS (4)
  - PYREXIA [None]
  - GASTROINTESTINAL FISTULA [None]
  - SMALL INTESTINAL RESECTION [None]
  - ABSCESS INTESTINAL [None]
